FAERS Safety Report 12252407 (Version 1)
Quarter: 2016Q2

REPORT INFORMATION
  Report Type: Spontaneous
  Country: US (occurrence: US)
  Receive Date: 20160411
  Receipt Date: 20160411
  Transmission Date: 20160815
  Serious: No
  Sender: FDA-Public Use
  Company Number: ADR-2015-01464

PATIENT
  Age: 52 Year
  Sex: Male

DRUGS (1)
  1. COMPOUNDED BACLOFEN [Suspect]
     Active Substance: BACLOFEN
     Dosage: 800 MCG/DAY
     Route: 037

REACTIONS (3)
  - Musculoskeletal stiffness [Unknown]
  - Feeling abnormal [Unknown]
  - Confusional state [Unknown]
